FAERS Safety Report 5553402-4 (Version None)
Quarter: 2007Q4

REPORT INFORMATION
  Report Type: 
  Country: None (occurrence: None)
  Receive Date: 20071211
  Receipt Date: 20071126
  Transmission Date: 20080405
  Serious: Yes (Other)
  Sender: FDA-Public Use
  Company Number: 2007S1010167

PATIENT
  Age: 24 Year
  Sex: Female

DRUGS (2)
  1. ISOTRETINOIN [Suspect]
     Dosage: 40 MG;TWICE A DAY;ORAL
     Route: 048
     Dates: start: 20070504, end: 20071015
  2. ACCUTANE [Suspect]
     Dosage: 40 MG;DAILY;ORAL
     Route: 048
     Dates: start: 20070331, end: 20070430

REACTIONS (3)
  - ABORTION INDUCED [None]
  - DRUG EXPOSURE DURING PREGNANCY [None]
  - UNINTENDED PREGNANCY [None]
